FAERS Safety Report 10523314 (Version 1)
Quarter: 2014Q4

REPORT INFORMATION
  Report Type: Report from Study
  Country: BR (occurrence: BR)
  Receive Date: 20141016
  Receipt Date: 20141016
  Transmission Date: 20150528
  Serious: Yes (Other)
  Sender: FDA-Public Use
  Company Number: PHHY2014BR132221

PATIENT
  Age: 59 Year
  Sex: Female
  Weight: 84 kg

DRUGS (2)
  1. AFINITOR [Suspect]
     Active Substance: EVEROLIMUS
     Indication: HEPATIC CANCER
     Dosage: 10 MG, QD
     Route: 048
     Dates: start: 201310
  2. AFINITOR [Suspect]
     Active Substance: EVEROLIMUS
     Indication: OFF LABEL USE

REACTIONS (18)
  - Hepatic neoplasm [Recovering/Resolving]
  - Dizziness [Unknown]
  - Headache [Unknown]
  - Decreased appetite [Recovering/Resolving]
  - Glucose tolerance impaired [Recovering/Resolving]
  - Hypertension [Recovering/Resolving]
  - Depression [Recovering/Resolving]
  - Anal fissure [Unknown]
  - Umbilical hernia, obstructive [Not Recovered/Not Resolved]
  - Haemorrhoids [Unknown]
  - Dysgeusia [Recovering/Resolving]
  - Allergic cough [Recovered/Resolved]
  - Malaise [Recovering/Resolving]
  - Tremor [Unknown]
  - Vision blurred [Recovering/Resolving]
  - Nausea [Recovering/Resolving]
  - Asthenia [Recovering/Resolving]
  - Weight decreased [Not Recovered/Not Resolved]

NARRATIVE: CASE EVENT DATE: 201310
